FAERS Safety Report 11684078 (Version 1)
Quarter: 2015Q4

REPORT INFORMATION
  Report Type: Spontaneous
  Country: GR (occurrence: GR)
  Receive Date: 20151029
  Receipt Date: 20151029
  Transmission Date: 20160304
  Serious: Yes (Hospitalization, Other)
  Sender: FDA-Public Use
  Company Number: GR-JNJFOC-20151021716

PATIENT
  Age: 78 Year
  Sex: Female

DRUGS (6)
  1. ATACAND [Concomitant]
     Active Substance: CANDESARTAN CILEXETIL
     Route: 065
  2. LASIX [Concomitant]
     Active Substance: FUROSEMIDE
     Route: 065
  3. LYRICA [Concomitant]
     Active Substance: PREGABALIN
     Route: 065
  4. XARELTO [Suspect]
     Active Substance: RIVAROXABAN
     Indication: HYPERCOAGULATION
     Route: 048
     Dates: start: 2015, end: 20151016
  5. INSPRA [Concomitant]
     Active Substance: EPLERENONE
     Route: 065
  6. CARVEDILOL. [Concomitant]
     Active Substance: CARVEDILOL
     Route: 065

REACTIONS (5)
  - Head injury [Unknown]
  - Limb injury [Unknown]
  - Off label use [Unknown]
  - Haemorrhage intracranial [Recovering/Resolving]
  - Syncope [Recovered/Resolved]

NARRATIVE: CASE EVENT DATE: 20151016
